FAERS Safety Report 14092830 (Version 2)
Quarter: 2017Q4

REPORT INFORMATION
  Report Type: Spontaneous
  Country: BR (occurrence: BR)
  Receive Date: 20171016
  Receipt Date: 20171204
  Transmission Date: 20180321
  Serious: Yes (Other)
  Sender: FDA-Public Use
  Company Number: BR-PFIZER INC-2017440127

PATIENT
  Age: 90 Year
  Sex: Female

DRUGS (8)
  1. ANGIPRESS /00422901/ [Concomitant]
     Indication: BLOOD PRESSURE MEASUREMENT
     Dosage: UNK
  2. OMEPRAZOLE. [Concomitant]
     Active Substance: OMEPRAZOLE
     Dosage: UNK
  3. NEUTROFER [Concomitant]
     Active Substance: FERROUS BISGLYCINATE
     Indication: MINERAL SUPPLEMENTATION
     Dosage: UNK
  4. MONOCORDIL [Concomitant]
     Active Substance: ISOSORBIDE MONONITRATE
     Indication: BLOOD PRESSURE MANAGEMENT
     Dosage: UNK
  5. ZYLORIC [Concomitant]
     Active Substance: ALLOPURINOL
     Dosage: UNK
  6. LIPITOR [Suspect]
     Active Substance: ATORVASTATIN CALCIUM
     Dosage: 20 MG (ONE TABLET), 1X/DAY
     Dates: start: 2000, end: 201704
  7. OLCADIL [Concomitant]
     Active Substance: CLOXAZOLAM
     Indication: ANXIOLYTIC THERAPY
     Dosage: UNK
  8. CALDE [Concomitant]
     Active Substance: CALCIUM CARBONATE\CHOLECALCIFEROL
     Indication: BONE DISORDER
     Dosage: UNK

REACTIONS (13)
  - Fatigue [Not Recovered/Not Resolved]
  - Vascular dementia [Not Recovered/Not Resolved]
  - Brain hypoxia [Not Recovered/Not Resolved]
  - Dysphagia [Not Recovered/Not Resolved]
  - Judgement impaired [Not Recovered/Not Resolved]
  - Feeding disorder [Not Recovered/Not Resolved]
  - Aphasia [Not Recovered/Not Resolved]
  - Blood pressure decreased [Not Recovered/Not Resolved]
  - Gait inability [Not Recovered/Not Resolved]
  - Cognitive disorder [Not Recovered/Not Resolved]
  - Visual impairment [Unknown]
  - Fear [Unknown]
  - Insomnia [Not Recovered/Not Resolved]

NARRATIVE: CASE EVENT DATE: 2015
